FAERS Safety Report 5940275-0 (Version None)
Quarter: 2008Q4

REPORT INFORMATION
  Report Type: 
  Country: None (occurrence: None)
  Receive Date: 20081030
  Receipt Date: 20081022
  Transmission Date: 20090506
  Serious: Yes (Hospitalization, Disabling, Other)
  Sender: FDA-Public Use
  Company Number: 2005-10-0287

PATIENT
  Age: 54 Year
  Sex: Male
  Weight: 105 kg

DRUGS (4)
  1. VIRAFERON [Suspect]
     Indication: HEPATITIS C
     Dosage: 800 MCG;QW;SC 150;QW; SC
     Route: 058
     Dates: end: 20040626
  2. VIRAFERON [Suspect]
     Indication: HEPATITIS C
     Dosage: 800 MCG;QW;SC 150;QW; SC
     Route: 058
     Dates: start: 20030501
  3. REBETOL [Concomitant]
     Indication: HEPATITIS C
     Dosage: 800 MG;QD;PO
     Route: 048
     Dates: start: 20030501
  4. PROZAC [Concomitant]

REACTIONS (15)
  - ACTIVITIES OF DAILY LIVING IMPAIRED [None]
  - CEREBROVASCULAR DISORDER [None]
  - DEMYELINATION [None]
  - DEPRESSION [None]
  - DRUG INEFFECTIVE [None]
  - IMPAIRED DRIVING ABILITY [None]
  - IMPAIRED WORK ABILITY [None]
  - MOVEMENT DISORDER [None]
  - OPTIC ATROPHY [None]
  - OPTIC ISCHAEMIC NEUROPATHY [None]
  - OPTIC NEURITIS [None]
  - PAPILLOEDEMA [None]
  - SUICIDAL IDEATION [None]
  - VISUAL ACUITY REDUCED [None]
  - WEIGHT INCREASED [None]
